FAERS Safety Report 13237032 (Version 2)
Quarter: 2017Q2

REPORT INFORMATION
  Report Type: Spontaneous
  Country: AT (occurrence: AT)
  Receive Date: 20170215
  Receipt Date: 20170615
  Transmission Date: 20170830
  Serious: Yes (Hospitalization)
  Sender: FDA-Public Use
  Company Number: AT-TEVA-738051ISR

PATIENT
  Age: 30 Year
  Sex: Female

DRUGS (51)
  1. TOPIRAMATE. [Suspect]
     Active Substance: TOPIRAMATE
     Route: 048
     Dates: start: 20160107, end: 20160107
  2. LAMICTAL [Concomitant]
     Active Substance: LAMOTRIGINE
     Route: 048
     Dates: start: 201506, end: 20161104
  3. LAMICTAL [Concomitant]
     Active Substance: LAMOTRIGINE
     Route: 048
     Dates: start: 20151105, end: 20161108
  4. RIVOTRIL [Concomitant]
     Active Substance: CLONAZEPAM
     Route: 048
     Dates: start: 20151106, end: 20151106
  5. RIVOTRIL [Concomitant]
     Active Substance: CLONAZEPAM
     Route: 048
     Dates: start: 20151227, end: 20160103
  6. SYCREST [Concomitant]
     Active Substance: ASENAPINE MALEATE
     Route: 048
     Dates: start: 20160111, end: 20160112
  7. TOPIRAMATE. [Suspect]
     Active Substance: TOPIRAMATE
     Route: 048
     Dates: start: 20151231, end: 20160104
  8. TOPIRAMATE. [Suspect]
     Active Substance: TOPIRAMATE
     Route: 048
     Dates: start: 20160111, end: 20160113
  9. LAMICTAL [Concomitant]
     Active Substance: LAMOTRIGINE
     Route: 048
     Dates: start: 20151215
  10. RIVOTRIL [Concomitant]
     Active Substance: CLONAZEPAM
     Route: 048
     Dates: start: 20151215, end: 20151226
  11. TRITTICO RETARD [Concomitant]
     Active Substance: TRAZODONE HYDROCHLORIDE
     Route: 048
     Dates: start: 20151108, end: 20151108
  12. TRITTICO RETARD [Concomitant]
     Active Substance: TRAZODONE HYDROCHLORIDE
     Route: 048
     Dates: start: 20160119
  13. LEPONEX [Concomitant]
     Active Substance: CLOZAPINE
     Route: 048
     Dates: start: 20151218, end: 20151226
  14. LEPONEX [Concomitant]
     Active Substance: CLOZAPINE
     Route: 048
     Dates: start: 20151227, end: 20151227
  15. SYCREST [Concomitant]
     Active Substance: ASENAPINE MALEATE
     Route: 048
     Dates: start: 20151210, end: 20151211
  16. LAEVOLAC [Concomitant]
     Active Substance: LACTULOSE
     Route: 065
     Dates: start: 20160116, end: 20160117
  17. LAEVOLAC [Concomitant]
     Active Substance: LACTULOSE
     Route: 065
     Dates: start: 20160118, end: 20160118
  18. DEPAKINE CRONO [Suspect]
     Active Substance: VALPROIC ACID
     Route: 048
     Dates: start: 20160114, end: 20160114
  19. LAMICTAL [Concomitant]
     Active Substance: LAMOTRIGINE
     Route: 048
     Dates: start: 20151123, end: 20161213
  20. RIVOTRIL [Concomitant]
     Active Substance: CLONAZEPAM
     Route: 048
     Dates: start: 20151104, end: 20151105
  21. RIVOTRIL [Concomitant]
     Active Substance: CLONAZEPAM
     Route: 048
     Dates: start: 20151202, end: 20151202
  22. RIVOTRIL [Concomitant]
     Active Substance: CLONAZEPAM
     Route: 048
     Dates: start: 20160105, end: 20160118
  23. RIVOTRIL [Concomitant]
     Active Substance: CLONAZEPAM
     Route: 048
     Dates: start: 20160120
  24. LEPONEX [Concomitant]
     Active Substance: CLOZAPINE
     Route: 048
     Dates: start: 20160120
  25. SYCREST [Concomitant]
     Active Substance: ASENAPINE MALEATE
     Route: 065
     Dates: start: 20151231, end: 20160110
  26. TOPIRAMATE. [Suspect]
     Active Substance: TOPIRAMATE
     Route: 048
     Dates: start: 20160108, end: 20160110
  27. DEPAKINE CRONO [Suspect]
     Active Substance: VALPROIC ACID
     Route: 048
     Dates: start: 20160112, end: 20160113
  28. RIVOTRIL [Concomitant]
     Active Substance: CLONAZEPAM
     Route: 048
     Dates: start: 20160104, end: 20160104
  29. RIVOTRIL [Concomitant]
     Active Substance: CLONAZEPAM
     Route: 048
     Dates: start: 20160119, end: 20160119
  30. TRITTICO RETARD [Concomitant]
     Active Substance: TRAZODONE HYDROCHLORIDE
     Route: 048
     Dates: start: 20151203, end: 20160118
  31. DEPAKINE CRONO [Suspect]
     Active Substance: VALPROIC ACID
     Route: 048
     Dates: start: 20160108, end: 20160111
  32. SYCREST [Concomitant]
     Active Substance: ASENAPINE MALEATE
     Route: 048
     Dates: start: 20151212, end: 20151214
  33. SYCREST [Concomitant]
     Active Substance: ASENAPINE MALEATE
     Route: 048
     Dates: start: 20151221, end: 20151230
  34. TOPIRAMATE. [Suspect]
     Active Substance: TOPIRAMATE
     Route: 048
     Dates: start: 20151223, end: 20151228
  35. TOPIRAMATE. [Suspect]
     Active Substance: TOPIRAMATE
     Route: 048
     Dates: start: 20151229, end: 20151230
  36. TOPIRAMATE. [Suspect]
     Active Substance: TOPIRAMATE
     Route: 048
     Dates: start: 20160105, end: 20160106
  37. LAMICTAL [Concomitant]
     Active Substance: LAMOTRIGINE
     Route: 048
     Dates: start: 20151109, end: 20161122
  38. LAMICTAL [Concomitant]
     Active Substance: LAMOTRIGINE
     Route: 048
     Dates: start: 20151214, end: 20161214
  39. TRITTICO RETARD [Concomitant]
     Active Substance: TRAZODONE HYDROCHLORIDE
     Route: 048
     Dates: start: 20151107, end: 20151107
  40. LEPONEX [Concomitant]
     Active Substance: CLOZAPINE
     Route: 048
     Dates: start: 20151228, end: 20160119
  41. SYCREST [Concomitant]
     Active Substance: ASENAPINE MALEATE
     Route: 048
     Dates: start: 20151215, end: 20151215
  42. SYCREST [Concomitant]
     Active Substance: ASENAPINE MALEATE
     Route: 048
     Dates: start: 20151216, end: 20151220
  43. GASTROZEPIN [Concomitant]
     Active Substance: PIRENZEPINE HYDROCHLORIDE
     Route: 048
     Dates: start: 20151222, end: 20160118
  44. STERIMAR NASENSPRAY [Concomitant]
     Route: 048
     Dates: start: 20160103, end: 20160115
  45. LAEVOLAC [Concomitant]
     Active Substance: LACTULOSE
     Route: 065
     Dates: start: 20160115, end: 20160115
  46. LEPONEX [Concomitant]
     Active Substance: CLOZAPINE
     Route: 048
     Dates: start: 20151207, end: 20151213
  47. GASTROZEPIN [Concomitant]
     Active Substance: PIRENZEPINE HYDROCHLORIDE
     Route: 048
     Dates: start: 20151217, end: 20151221
  48. DEPAKINE CRONO [Suspect]
     Active Substance: VALPROIC ACID
     Route: 048
     Dates: start: 20160107, end: 20160107
  49. RIVOTRIL [Concomitant]
     Active Substance: CLONAZEPAM
     Route: 048
     Dates: start: 20151203, end: 20151214
  50. TRITTICO RETARD [Concomitant]
     Active Substance: TRAZODONE HYDROCHLORIDE
     Route: 048
     Dates: start: 20151109, end: 20151202
  51. LEPONEX [Concomitant]
     Active Substance: CLOZAPINE
     Route: 048
     Dates: start: 20151217, end: 20151217

REACTIONS (1)
  - Encephalopathy [Recovered/Resolved]

NARRATIVE: CASE EVENT DATE: 20160113
